FAERS Safety Report 15538181 (Version 1)
Quarter: 2018Q4

REPORT INFORMATION
  Report Type: Spontaneous
  Country: GB (occurrence: GB)
  Receive Date: 20181022
  Receipt Date: 20181022
  Transmission Date: 20190205
  Serious: Yes (Other)
  Sender: FDA-Public Use
  Company Number: GB-PFIZER INC-2018425756

PATIENT
  Age: 9 Year
  Sex: Male

DRUGS (1)
  1. GENTAMICIN SULFATE. [Suspect]
     Active Substance: GENTAMICIN SULFATE
     Dosage: UNK
     Dates: end: 20180802

REACTIONS (3)
  - Blood creatinine increased [Unknown]
  - Drug level increased [Unknown]
  - Blood urea increased [Unknown]
